FAERS Safety Report 5726486-8 (Version None)
Quarter: 2008Q2

REPORT INFORMATION
  Report Type: 
  Country: None (occurrence: None)
  Receive Date: 20080502
  Receipt Date: 20080425
  Transmission Date: 20081010
  Serious: Yes (Hospitalization)
  Sender: FDA-Public Use
  Company Number: US-BAXTER-2008BH004377

PATIENT
  Age: 29 Year
  Sex: Female

DRUGS (8)
  1. REGLAN [Suspect]
     Indication: DRUG USE FOR UNKNOWN INDICATION
     Dosage: DOSE UNIT:UNKNOWN
     Route: 065
  2. PROVIGIL [Suspect]
     Indication: HYPERSOMNIA
     Route: 048
     Dates: start: 20071016, end: 20071029
  3. PROVIGIL [Suspect]
     Route: 048
     Dates: start: 20071030, end: 20071106
  4. LASIX [Suspect]
     Indication: OEDEMA
     Route: 048
     Dates: start: 20071101, end: 20071101
  5. SKELAXIN [Concomitant]
     Indication: MUSCULOSKELETAL STIFFNESS
     Route: 065
     Dates: start: 20071102
  6. PROZAC [Concomitant]
     Indication: DRUG USE FOR UNKNOWN INDICATION
     Route: 065
  7. WELLBUTRIN [Concomitant]
     Indication: DEPRESSION
     Route: 065
  8. VITAMIN CAP [Concomitant]
     Indication: DRUG USE FOR UNKNOWN INDICATION
     Route: 065

REACTIONS (2)
  - DRUG RASH WITH EOSINOPHILIA AND SYSTEMIC SYMPTOMS [None]
  - DYSTONIA [None]
